FAERS Safety Report 23410542 (Version 2)
Quarter: 2025Q4

REPORT INFORMATION
  Report Type: Spontaneous
  Country: EU (occurrence: EU)
  Receive Date: 20240117
  Receipt Date: 20251008
  Transmission Date: 20260118
  Serious: Yes (Other)
  Sender: MYLAN
  Company Number: EU-BRISTOL-MYERS SQUIBB COMPANY-2023-189574

PATIENT
  Sex: Male

DRUGS (5)
  1. PREDNISONE [Suspect]
     Active Substance: PREDNISONE
     Indication: VEXAS syndrome
     Dosage: ? 25 MG
  2. AZACITIDINE [Suspect]
     Active Substance: AZACITIDINE
     Indication: VEXAS syndrome
     Dosage: 100 MILLIGRAM/SQ. METER FOR 5 DAYS
  3. METHOTREXATE SODIUM [Suspect]
     Active Substance: METHOTREXATE SODIUM
     Indication: VEXAS syndrome
     Dosage: UNK
  4. SARILUMAB [Suspect]
     Active Substance: SARILUMAB
     Indication: VEXAS syndrome
     Dosage: 200 MILLIGRAM
  5. TOCILIZUMAB [Suspect]
     Active Substance: TOCILIZUMAB
     Indication: VEXAS syndrome
     Dosage: 8 MILLIGRAM/KILOGRAM

REACTIONS (11)
  - Escherichia bacteraemia [Unknown]
  - Neutropenia [Unknown]
  - COVID-19 [Recovered/Resolved]
  - Oral herpes [Recovered/Resolved]
  - Infection reactivation [Recovered/Resolved]
  - Bacterial infection [Recovered/Resolved]
  - Device related infection [Recovered/Resolved]
  - Off label use [Unknown]
  - Drug ineffective [Unknown]
  - Drug ineffective for unapproved indication [Unknown]
  - Drug resistance [Unknown]
